FAERS Safety Report 6630922-2 (Version None)
Quarter: 2010Q1

REPORT INFORMATION
  Report Type: 
  Country: None (occurrence: None)
  Receive Date: 20100311
  Receipt Date: 20100301
  Transmission Date: 20100710
  Serious: Yes (Other)
  Sender: FDA-Public Use
  Company Number: US-ELI_LILLY_AND_COMPANY-US201003001326

PATIENT
  Sex: Male

DRUGS (2)
  1. ZYPREXA [Suspect]
     Indication: DEPRESSION
     Dates: start: 19980101, end: 20070101
  2. DEPAKOTE [Concomitant]
     Indication: CONVULSION

REACTIONS (14)
  - AMNESIA [None]
  - BLOOD GLUCOSE DECREASED [None]
  - CHEST PAIN [None]
  - COUGH [None]
  - DIABETES MELLITUS [None]
  - DIZZINESS [None]
  - DYSPNOEA [None]
  - HYPERTENSION [None]
  - MUSCLE SPASMS [None]
  - OFF LABEL USE [None]
  - POOR PERIPHERAL CIRCULATION [None]
  - PULMONARY OEDEMA [None]
  - PULMONARY TOXICITY [None]
  - WEIGHT INCREASED [None]
